FAERS Safety Report 25383542 (Version 2)
Quarter: 2025Q2

REPORT INFORMATION
  Report Type: Spontaneous
  Country: US (occurrence: US)
  Receive Date: 20250602
  Receipt Date: 20250618
  Transmission Date: 20250716
  Serious: No
  Sender: AMGEN
  Company Number: US-AMGEN-USASP2025101575

PATIENT
  Sex: Female

DRUGS (3)
  1. PROLIA [Suspect]
     Active Substance: DENOSUMAB
     Indication: Product used for unknown indication
     Route: 065
  2. EVENITY [Suspect]
     Active Substance: ROMOSOZUMAB-AQQG
     Indication: Bone density abnormal
     Route: 065
  3. FOSAMAX [Concomitant]
     Active Substance: ALENDRONATE SODIUM
     Indication: Product used for unknown indication
     Route: 065

REACTIONS (2)
  - Circumstance or information capable of leading to medication error [Unknown]
  - Pain in jaw [Unknown]
